FAERS Safety Report 17162705 (Version 1)
Quarter: 2019Q4

REPORT INFORMATION
  Report Type: Spontaneous
  Country: IN (occurrence: IN)
  Receive Date: 20191217
  Receipt Date: 20191217
  Transmission Date: 20200122
  Serious: Yes (Hospitalization, Disabling)
  Sender: FDA-Public Use
  Company Number: IN-STRIDES ARCOLAB LIMITED-2019SP012756

PATIENT
  Age: 35 Year
  Sex: Male

DRUGS (8)
  1. TACROLIMUS. [Suspect]
     Active Substance: TACROLIMUS
     Indication: RENAL TRANSPLANT
     Dosage: UNK, DOSE WAS REDUCED TO 8.2 NG/L
     Route: 065
  2. SOLU-MEDROL [Concomitant]
     Active Substance: METHYLPREDNISOLONE SODIUM SUCCINATE
     Indication: RENAL TRANSPLANT
  3. MYCOPHENOLATE MOFETIL. [Concomitant]
     Active Substance: MYCOPHENOLATE MOFETIL
     Indication: RENAL TRANSPLANT
  4. SOLU-MEDROL [Concomitant]
     Active Substance: METHYLPREDNISOLONE SODIUM SUCCINATE
     Indication: IMMUNOSUPPRESSANT DRUG THERAPY
     Dosage: UNK
     Route: 065
  5. WYSOLONE [Concomitant]
     Active Substance: PREDNISOLONE
     Indication: IMMUNOSUPPRESSANT DRUG THERAPY
     Dosage: UNK
     Route: 065
  6. WYSOLONE [Concomitant]
     Active Substance: PREDNISOLONE
     Indication: RENAL TRANSPLANT
  7. MYCOPHENOLATE MOFETIL. [Concomitant]
     Active Substance: MYCOPHENOLATE MOFETIL
     Indication: IMMUNOSUPPRESSANT DRUG THERAPY
     Dosage: UNK
     Route: 065
  8. TACROLIMUS. [Suspect]
     Active Substance: TACROLIMUS
     Indication: IMMUNOSUPPRESSANT DRUG THERAPY
     Dosage: UNK; 3 DOSES
     Route: 065

REACTIONS (12)
  - Blood electrolytes abnormal [Recovered/Resolved]
  - Toxicity to various agents [Unknown]
  - Renal impairment [Not Recovered/Not Resolved]
  - Areflexia [Recovered/Resolved]
  - Muscular weakness [Unknown]
  - Demyelination [Recovered/Resolved]
  - Fluid imbalance [Recovered/Resolved]
  - Hypotonia [Recovered/Resolved]
  - Diarrhoea [Unknown]
  - Demyelinating polyneuropathy [Recovered/Resolved]
  - Joint position sense decreased [Recovered/Resolved]
  - Peroneal nerve palsy [Not Recovered/Not Resolved]
